FAERS Safety Report 8111498-X (Version None)
Quarter: 2012Q1

REPORT INFORMATION
  Report Type: 
  Country: None (occurrence: None)
  Receive Date: 20120203
  Receipt Date: 20120125
  Transmission Date: 20120608
  Serious: Yes (Hospitalization)
  Sender: FDA-Public Use
  Company Number: US-AMGEN-USASP2012005443

PATIENT
  Age: 69 Year
  Sex: Male
  Weight: 86.168 kg

DRUGS (6)
  1. REMICADE [Suspect]
     Indication: RHEUMATOID ARTHRITIS
     Dosage: 30 MG, Q8WK
     Route: 042
     Dates: start: 20050101
  2. REMICADE [Suspect]
     Dosage: 30 MG, Q7WK
  3. REMICADE [Suspect]
     Dosage: 40 MG, Q8WK
  4. METHOTREXATE [Suspect]
     Indication: PRODUCT USED FOR UNKNOWN INDICATION
     Dosage: UNK
  5. ENBREL [Suspect]
     Indication: PRODUCT USED FOR UNKNOWN INDICATION
     Dosage: UNK
  6. METFORMIN HCL [Concomitant]
     Indication: DIABETES MELLITUS
     Dosage: 50 MG, BID
     Route: 048

REACTIONS (6)
  - UPPER RESPIRATORY TRACT INFECTION [None]
  - INFLAMMATION [None]
  - PAIN IN EXTREMITY [None]
  - SINUSITIS [None]
  - ADVERSE DRUG REACTION [None]
  - OEDEMA PERIPHERAL [None]
